FAERS Safety Report 6177717-4 (Version None)
Quarter: 2009Q2

REPORT INFORMATION
  Report Type: 
  Country: None (occurrence: None)
  Receive Date: 20090504
  Receipt Date: 20090422
  Transmission Date: 20091009
  Serious: Yes (Other)
  Sender: FDA-Public Use
  Company Number: GB-PFIZER INC-2009206813

PATIENT

DRUGS (4)
  1. VINCRISTINE SULFATE [Interacting]
     Indication: ACUTE LYMPHOCYTIC LEUKAEMIA
     Dosage: ON DAYS 1, 8, 15
     Dates: start: 19950308
  2. NIFEDIPINE [Suspect]
     Indication: HYPERTENSION
     Dosage: FROM DAY 17 TO DAY 33
  3. ASPARAGINASE [Suspect]
     Indication: ACUTE LYMPHOCYTIC LEUKAEMIA
     Dosage: UNK
     Dates: start: 19950308
  4. ITRACONAZOLE [Interacting]
     Indication: FUNGAL INFECTION
     Dosage: FROM DAY 2 TO DAY 51

REACTIONS (4)
  - DRUG INTERACTION [None]
  - HYPERTENSION [None]
  - HYPONATRAEMIA [None]
  - ILEUS PARALYTIC [None]
